FAERS Safety Report 7626806 (Version 3)
Quarter: 2020Q1

REPORT INFORMATION
  Report Type: Report from Study
  Country: EC (occurrence: EC)
  Receive Date: 20101013
  Receipt Date: 20200303
  Transmission Date: 20200409
  Serious: Yes (Disabling, Other)
  Sender: FDA-Public Use
  Company Number: EC-ROCHE-731778

PATIENT
  Age: 74 Year
  Sex: Female
  Weight: 61.2 kg

DRUGS (1)
  1. BONVIVA [Suspect]
     Active Substance: IBANDRONATE SODIUM
     Indication: OSTEOPOROSIS
     Dosage: FORM: INFUSION. (INJECTION AND VIAL)
     Route: 065
     Dates: start: 20100928

REACTIONS (12)
  - Pyrexia [Unknown]
  - Vomiting [Unknown]
  - Blood pressure decreased [Unknown]
  - Visual impairment [Unknown]
  - Syncope [Unknown]
  - Dyspnoea [Unknown]
  - Hypotension [Recovered/Resolved]
  - Malaise [Unknown]
  - Nephrolithiasis [Unknown]
  - Pulse absent [Unknown]
  - Muscle spasms [Recovered/Resolved]
  - Influenza [Recovering/Resolving]

NARRATIVE: CASE EVENT DATE: 20100929
